FAERS Safety Report 23519113 (Version 2)
Quarter: 2024Q2

REPORT INFORMATION
  Report Type: Spontaneous
  Country: ES (occurrence: ES)
  Receive Date: 20240213
  Receipt Date: 20240523
  Transmission Date: 20240716
  Serious: Yes (Other)
  Sender: FDA-Public Use
  Company Number: ES-BAUSCHBL-2024BNL001657

PATIENT
  Age: 3 Decade
  Sex: Male

DRUGS (6)
  1. DEXAMETHASONE [Suspect]
     Active Substance: DEXAMETHASONE
     Indication: Inflammatory pseudotumour
     Dosage: TWO MONTHS AFTER SPLENECTOMY
     Route: 065
  2. DEXAMETHASONE [Suspect]
     Active Substance: DEXAMETHASONE
     Dosage: AFTER 3 ASYMPTOMATIC YEARS
     Route: 065
  3. PREDNISONE [Suspect]
     Active Substance: PREDNISONE
     Indication: Inflammatory pseudotumour
     Dosage: TWO MONTHS AFTER SPLENECTOMY, ON A DESCENDING REGIMEN FOR MONTHS
     Route: 065
  4. LEVETIRACETAM [Concomitant]
     Active Substance: LEVETIRACETAM
     Indication: Inflammatory pseudotumour
     Dosage: AFTER 3 ASYMPTOMATIC YEARS
  5. RITUXIMAB [Concomitant]
     Active Substance: RITUXIMAB
     Indication: Inflammatory pseudotumour
     Dosage: TWO WEEKLY DOSES OF 1 G
  6. MYCOPHENOLATE MOFETIL [Concomitant]
     Active Substance: MYCOPHENOLATE MOFETIL
     Indication: Inflammatory pseudotumour
     Dosage: CORTICOSTEROID-SAVING MEASURE

REACTIONS (5)
  - Steroid dependence [Unknown]
  - Cushingoid [Unknown]
  - Obesity [Unknown]
  - Acne [Unknown]
  - Osteoporosis [Unknown]
